FAERS Safety Report 6492590-2 (Version None)
Quarter: 2009Q4

REPORT INFORMATION
  Report Type: 
  Country: None (occurrence: None)
  Receive Date: 20091211
  Receipt Date: 20091211
  Transmission Date: 20100525
  Serious: Yes (Other)
  Sender: FDA-Public Use
  Company Number: None

PATIENT
  Age: 82 Year
  Sex: Female
  Weight: 86.1834 kg

DRUGS (1)
  1. VOLTAREN [Suspect]
     Indication: ARTHRITIS
     Dosage: ONE PILL TWO TIMES A DAY ORAL
     Route: 048
     Dates: start: 20090822

REACTIONS (2)
  - ABDOMINAL DISCOMFORT [None]
  - BURNING SENSATION [None]
